FAERS Safety Report 8850601 (Version 2)
Quarter: 2013Q1

REPORT INFORMATION
  Report Type: Spontaneous
  Country: US (occurrence: US)
  Receive Date: 20121019
  Receipt Date: 20130308
  Transmission Date: 20140127
  Serious: No
  Sender: FDA-Public Use
  Company Number: US-ASTRAZENECA-2012SE79478

PATIENT
  Age: 65 Year
  Sex: Female

DRUGS (1)
  1. NEXIUM [Suspect]
     Indication: BARRETT^S OESOPHAGUS
     Route: 048

REACTIONS (5)
  - Barrett^s oesophagus [Unknown]
  - Aphagia [Unknown]
  - Weight decreased [Unknown]
  - Gastric disorder [Unknown]
  - Drug dose omission [Unknown]
